FAERS Safety Report 21800306 (Version 2)
Quarter: 2023Q1

REPORT INFORMATION
  Report Type: Spontaneous
  Country: US (occurrence: US)
  Receive Date: 20221230
  Receipt Date: 20230103
  Transmission Date: 20230417
  Serious: No
  Sender: FDA-Public Use
  Company Number: US-PFIZER INC-202201399458

PATIENT
  Age: 80 Year
  Sex: Male

DRUGS (1)
  1. PAXLOVID [Suspect]
     Active Substance: NIRMATRELVIR\RITONAVIR
     Indication: COVID-19 treatment
     Dosage: UNK
     Dates: start: 20221201, end: 20221205

REACTIONS (10)
  - Illness [Not Recovered/Not Resolved]
  - Pyrexia [Unknown]
  - Condition aggravated [Unknown]
  - Anxiety [Unknown]
  - Tremor [Unknown]
  - Insomnia [Unknown]
  - Hepatic enzyme increased [Unknown]
  - Night sweats [Unknown]
  - Fatigue [Unknown]
  - Malaise [Unknown]

NARRATIVE: CASE EVENT DATE: 20221206
